FAERS Safety Report 19086610 (Version 1)
Quarter: 2021Q2

REPORT INFORMATION
  Report Type: Spontaneous
  Country: US (occurrence: US)
  Receive Date: 20210402
  Receipt Date: 20210402
  Transmission Date: 20210717
  Serious: Yes (Other)
  Sender: FDA-Public Use
  Company Number: US-MYLANLABS-2021M1019763

PATIENT
  Age: 6 Decade
  Sex: Female

DRUGS (5)
  1. CAPECITABINE. [Suspect]
     Active Substance: CAPECITABINE
     Indication: PITUITARY TUMOUR BENIGN
     Dosage: 1500 MILLIGRAM/SQ. METER, QD DIVIDED INTO 2 DOSES ON DAYS 1 THROUGH 14
     Route: 065
  2. TEMOZOLOMIDE. [Suspect]
     Active Substance: TEMOZOLOMIDE
     Indication: PITUITARY TUMOUR BENIGN
     Dosage: 150 TO 200 MG/M2; DIVIDED INTO 2 DOSES ON DAYS 10 TO 14 OF A 28 DAY CYCLE
     Route: 065
  3. CABERGOLINE. [Suspect]
     Active Substance: CABERGOLINE
     Indication: PITUITARY TUMOUR BENIGN
     Route: 065
  4. PASIREOTIDE. [Suspect]
     Active Substance: PASIREOTIDE
     Indication: PITUITARY TUMOUR BENIGN
     Route: 065
  5. KETOCONAZOLE. [Suspect]
     Active Substance: KETOCONAZOLE
     Indication: PITUITARY TUMOUR BENIGN
     Route: 065

REACTIONS (4)
  - Off label use [Unknown]
  - Drug ineffective [Unknown]
  - Disease progression [Unknown]
  - Pituitary tumour benign [Unknown]
